FAERS Safety Report 11613521 (Version 6)
Quarter: 2016Q2

REPORT INFORMATION
  Report Type: Report from Study
  Country: US (occurrence: US)
  Receive Date: 20151008
  Receipt Date: 20160520
  Transmission Date: 20160815
  Serious: Yes (Hospitalization, Other)
  Sender: FDA-Public Use
  Company Number: US-AMGEN-USASP2015102108

PATIENT
  Age: 72 Year
  Sex: Male

DRUGS (2)
  1. ENBREL [Suspect]
     Active Substance: ETANERCEPT
     Indication: RHEUMATOID ARTHRITIS
     Dosage: 50 MG, QWK
     Route: 065
     Dates: start: 201507
  2. COUMADIN [Concomitant]
     Active Substance: WARFARIN SODIUM
     Dosage: UNK

REACTIONS (26)
  - Hip fracture [Unknown]
  - Abasia [Unknown]
  - Cystitis [Unknown]
  - Blood sodium decreased [Unknown]
  - Nerve compression [Unknown]
  - Back pain [Not Recovered/Not Resolved]
  - Hypoacusis [Unknown]
  - Mental impairment [Unknown]
  - Fall [Unknown]
  - Encephalitis [Not Recovered/Not Resolved]
  - Swelling face [Recovering/Resolving]
  - Immune system disorder [Unknown]
  - Wrong technique in product usage process [Unknown]
  - Sleep talking [Not Recovered/Not Resolved]
  - Transient ischaemic attack [Unknown]
  - Blood sodium abnormal [Unknown]
  - Decubitus ulcer [Unknown]
  - Impaired driving ability [Recovered/Resolved]
  - Inappropriate schedule of drug administration [Unknown]
  - Gait disturbance [Unknown]
  - Surgery [Unknown]
  - Staphylococcal infection [Unknown]
  - General physical condition abnormal [Unknown]
  - Hip surgery [Unknown]
  - Meningitis pneumococcal [Not Recovered/Not Resolved]
  - Sepsis [Not Recovered/Not Resolved]

NARRATIVE: CASE EVENT DATE: 2015
